FAERS Safety Report 24177648 (Version 1)
Quarter: 2024Q3

REPORT INFORMATION
  Report Type: Report from Study
  Country: US (occurrence: None)
  Receive Date: 20240806
  Receipt Date: 20240806
  Transmission Date: 20241016
  Serious: Yes (Hospitalization)
  Sender: ASTRAZENECA
  Company Number: 2020SF33827

PATIENT
  Age: 57 Year
  Sex: Male

DRUGS (11)
  1. TAGRISSO [Suspect]
     Active Substance: OSIMERTINIB
     Indication: Lung carcinoma cell type unspecified stage 0
     Route: 048
     Dates: start: 20200829
  2. OMEPRAZOLE [Suspect]
     Active Substance: OMEPRAZOLE
  3. NORCO [Concomitant]
     Active Substance: ACETAMINOPHEN\HYDROCODONE BITARTRATE
  4. FLONASE [Concomitant]
     Active Substance: FLUTICASONE PROPIONATE
  5. METAMUCIL ORIGINAL TEXTUR [Concomitant]
  6. TAMSULOSIN HYDROCHLORIDE [Concomitant]
     Active Substance: TAMSULOSIN HYDROCHLORIDE
  7. TRIMETHOPRIM SULFATE/POLY [Concomitant]
  8. FOLIC ACID [Concomitant]
     Active Substance: FOLIC ACID
  9. DEXAMETHASONE [Concomitant]
     Active Substance: DEXAMETHASONE
  10. COMPAZINE [Concomitant]
     Active Substance: PROCHLORPERAZINE MALEATE
  11. ATIVAN [Concomitant]
     Active Substance: LORAZEPAM

REACTIONS (5)
  - Dehydration [Unknown]
  - Thrombosis [Unknown]
  - Hypotension [Unknown]
  - Fatigue [Unknown]
  - Dry mouth [Unknown]
